FAERS Safety Report 8725033 (Version 2)
Quarter: 2013Q4

REPORT INFORMATION
  Report Type: Report from Study
  Country: US (occurrence: US)
  Receive Date: 20120815
  Receipt Date: 20131106
  Transmission Date: 20140711
  Serious: Yes (Other)
  Sender: FDA-Public Use
  Company Number: US-ROCHE-706574

PATIENT
  Sex: 0

DRUGS (2)
  1. BEVACIZUMAB [Suspect]
     Indication: BREAST CANCER METASTATIC
     Route: 065
  2. FULVESTRANT [Suspect]
     Indication: BREAST CANCER METASTATIC
     Route: 065

REACTIONS (10)
  - Hypertension [Unknown]
  - Headache [Unknown]
  - Confusional state [Unknown]
  - Proteinuria [Unknown]
  - Device related infection [Unknown]
  - Blood creatinine increased [Unknown]
  - Disseminated intravascular coagulation [Unknown]
  - Cerebral ischaemia [Unknown]
  - Haemorrhage intracranial [Unknown]
  - Left ventricular failure [Unknown]
